FAERS Safety Report 9607683 (Version 1)
Quarter: 2013Q4

REPORT INFORMATION
  Report Type: Spontaneous
  Country: US (occurrence: US)
  Receive Date: 20131009
  Receipt Date: 20131009
  Transmission Date: 20140711
  Serious: No
  Sender: FDA-Public Use
  Company Number: US-SANOFI-AVENTIS-2013SA088553

PATIENT
  Age: 69 Year
  Sex: Female

DRUGS (12)
  1. ARAVA [Suspect]
     Indication: RHEUMATOID ARTHRITIS
     Route: 048
     Dates: start: 201306, end: 20130809
  2. MILNACIPRAN [Suspect]
     Indication: RHEUMATOID ARTHRITIS
     Route: 048
     Dates: start: 20130718, end: 20130727
  3. MILNACIPRAN [Suspect]
     Indication: RHEUMATOID ARTHRITIS
     Route: 048
     Dates: start: 20130728, end: 20130806
  4. MILNACIPRAN [Suspect]
     Indication: RHEUMATOID ARTHRITIS
     Route: 048
     Dates: start: 20130812
  5. BUMEX [Concomitant]
     Indication: CARDIAC FAILURE CONGESTIVE
     Route: 048
  6. POTASSIUM [Concomitant]
     Route: 048
  7. NAPROXEN [Concomitant]
     Route: 048
  8. NORVASC [Concomitant]
     Indication: HYPERTENSION
     Route: 048
  9. XANAX [Concomitant]
     Route: 065
  10. PREMARIN [Concomitant]
     Route: 048
  11. ZYRTEC [Concomitant]
     Indication: SEASONAL ALLERGY
     Route: 065
  12. ZYRTEC [Concomitant]
     Indication: ASTHMA
     Route: 065

REACTIONS (7)
  - Tremor [Recovered/Resolved]
  - Chills [Not Recovered/Not Resolved]
  - Cold sweat [Not Recovered/Not Resolved]
  - Fatigue [Not Recovered/Not Resolved]
  - Feeling hot [Not Recovered/Not Resolved]
  - Nausea [Not Recovered/Not Resolved]
  - Off label use [Unknown]
